FAERS Safety Report 4380415-0 (Version None)
Quarter: 2004Q2

REPORT INFORMATION
  Report Type: 
  Country: None (occurrence: None)
  Receive Date: 20040618
  Receipt Date: 20040614
  Transmission Date: 20050107
  Serious: Yes (Other)
  Sender: FDA-Public Use
  Company Number: US-BRISTOL-MYERS SQUIBB COMPANY-12613238

PATIENT
  Age: 61 Year
  Sex: Female

DRUGS (7)
  1. IFEX [Suspect]
     Indication: SARCOMA
     Route: 042
  2. FENTANYL [Concomitant]
  3. GABAPENTIN [Concomitant]
  4. RITALIN [Concomitant]
  5. LOVENOX [Concomitant]
  6. ASCORBIC ACID [Concomitant]
  7. DOXYCYCLINE [Concomitant]

REACTIONS (1)
  - NEUROTOXICITY [None]
